FAERS Safety Report 26157563 (Version 1)
Quarter: 2025Q4

REPORT INFORMATION
  Report Type: Spontaneous
  Country: GB (occurrence: GB)
  Receive Date: 20251215
  Receipt Date: 20251215
  Transmission Date: 20260118
  Serious: Yes (Hospitalization, Other)
  Sender: MYLAN
  Company Number: GB-RP-047931

PATIENT
  Age: 36 Year
  Sex: Male

DRUGS (60)
  1. PREGABALIN [Suspect]
     Active Substance: PREGABALIN
     Indication: Neuralgia
     Dosage: 75 MILLIGRAM, BID (TWICE DAILY)
     Dates: end: 2025
  2. PREGABALIN [Suspect]
     Active Substance: PREGABALIN
     Dosage: 75 MILLIGRAM, BID (TWICE DAILY)
     Route: 065
     Dates: end: 2025
  3. PREGABALIN [Suspect]
     Active Substance: PREGABALIN
     Dosage: 75 MILLIGRAM, BID (TWICE DAILY)
     Route: 065
     Dates: end: 2025
  4. PREGABALIN [Suspect]
     Active Substance: PREGABALIN
     Dosage: 75 MILLIGRAM, BID (TWICE DAILY)
     Dates: end: 2025
  5. ZUCLOPENTHIXOL DECANOATE [Suspect]
     Active Substance: ZUCLOPENTHIXOL DECANOATE
     Indication: Product used for unknown indication
     Dosage: 500 MILLIGRAM, Q2W (FORTNIGHTLY)
     Dates: start: 2024
  6. ZUCLOPENTHIXOL DECANOATE [Suspect]
     Active Substance: ZUCLOPENTHIXOL DECANOATE
     Dosage: 500 MILLIGRAM, Q2W (FORTNIGHTLY)
     Dates: start: 2024
  7. ZUCLOPENTHIXOL DECANOATE [Suspect]
     Active Substance: ZUCLOPENTHIXOL DECANOATE
     Dosage: 500 MILLIGRAM, Q2W (FORTNIGHTLY)
     Route: 065
     Dates: start: 2024
  8. ZUCLOPENTHIXOL DECANOATE [Suspect]
     Active Substance: ZUCLOPENTHIXOL DECANOATE
     Dosage: 500 MILLIGRAM, Q2W (FORTNIGHTLY)
     Route: 065
     Dates: start: 2024
  9. ZUCLOPENTHIXOL DECANOATE [Suspect]
     Active Substance: ZUCLOPENTHIXOL DECANOATE
     Dosage: UNK (TITRATED TO 500 MILLIGRAM)
  10. ZUCLOPENTHIXOL DECANOATE [Suspect]
     Active Substance: ZUCLOPENTHIXOL DECANOATE
     Dosage: UNK (TITRATED TO 500 MILLIGRAM)
  11. ZUCLOPENTHIXOL DECANOATE [Suspect]
     Active Substance: ZUCLOPENTHIXOL DECANOATE
     Dosage: UNK (TITRATED TO 500 MILLIGRAM)
     Route: 065
  12. ZUCLOPENTHIXOL DECANOATE [Suspect]
     Active Substance: ZUCLOPENTHIXOL DECANOATE
     Dosage: UNK (TITRATED TO 500 MILLIGRAM)
     Route: 065
  13. ZUCLOPENTHIXOL DECANOATE [Suspect]
     Active Substance: ZUCLOPENTHIXOL DECANOATE
     Dosage: 500 MILLIGRAM, QW (WEEKLY)
     Dates: start: 202505, end: 2025
  14. ZUCLOPENTHIXOL DECANOATE [Suspect]
     Active Substance: ZUCLOPENTHIXOL DECANOATE
     Dosage: 500 MILLIGRAM, QW (WEEKLY)
     Route: 065
     Dates: start: 202505, end: 2025
  15. ZUCLOPENTHIXOL DECANOATE [Suspect]
     Active Substance: ZUCLOPENTHIXOL DECANOATE
     Dosage: 500 MILLIGRAM, QW (WEEKLY)
     Dates: start: 202505, end: 2025
  16. ZUCLOPENTHIXOL DECANOATE [Suspect]
     Active Substance: ZUCLOPENTHIXOL DECANOATE
     Dosage: 500 MILLIGRAM, QW (WEEKLY)
     Route: 065
     Dates: start: 202505, end: 2025
  17. CLONAZEPAM [Concomitant]
     Active Substance: CLONAZEPAM
     Dosage: 1 MILLIGRAM, TID (THREE TIMES DAILY)
     Dates: start: 202505
  18. CLONAZEPAM [Concomitant]
     Active Substance: CLONAZEPAM
     Dosage: 1 MILLIGRAM, TID (THREE TIMES DAILY)
     Route: 065
     Dates: start: 202505
  19. CLONAZEPAM [Concomitant]
     Active Substance: CLONAZEPAM
     Dosage: 1 MILLIGRAM, TID (THREE TIMES DAILY)
     Route: 065
     Dates: start: 202505
  20. CLONAZEPAM [Concomitant]
     Active Substance: CLONAZEPAM
     Dosage: 1 MILLIGRAM, TID (THREE TIMES DAILY)
     Dates: start: 202505
  21. CHOLECALCIFEROL [Concomitant]
     Active Substance: CHOLECALCIFEROL
     Dosage: 800 DOSAGE FORM, QD (800 UNITS DAILY)
     Dates: start: 202505
  22. CHOLECALCIFEROL [Concomitant]
     Active Substance: CHOLECALCIFEROL
     Dosage: 800 DOSAGE FORM, QD (800 UNITS DAILY)
     Route: 065
     Dates: start: 202505
  23. CHOLECALCIFEROL [Concomitant]
     Active Substance: CHOLECALCIFEROL
     Dosage: 800 DOSAGE FORM, QD (800 UNITS DAILY)
     Route: 065
     Dates: start: 202505
  24. CHOLECALCIFEROL [Concomitant]
     Active Substance: CHOLECALCIFEROL
     Dosage: 800 DOSAGE FORM, QD (800 UNITS DAILY)
     Dates: start: 202505
  25. CYANOCOBALAMIN [Concomitant]
     Active Substance: CYANOCOBALAMIN
     Dosage: 1 MILLIGRAM, QD (DAILY)
     Dates: start: 202505
  26. CYANOCOBALAMIN [Concomitant]
     Active Substance: CYANOCOBALAMIN
     Dosage: 1 MILLIGRAM, QD (DAILY)
     Route: 065
     Dates: start: 202505
  27. CYANOCOBALAMIN [Concomitant]
     Active Substance: CYANOCOBALAMIN
     Dosage: 1 MILLIGRAM, QD (DAILY)
     Route: 065
     Dates: start: 202505
  28. CYANOCOBALAMIN [Concomitant]
     Active Substance: CYANOCOBALAMIN
     Dosage: 1 MILLIGRAM, QD (DAILY)
     Dates: start: 202505
  29. BISOPROLOL FUMARATE [Concomitant]
     Active Substance: BISOPROLOL FUMARATE
     Dosage: 1.25 MILLIGRAM, QD (DAILY)
     Dates: start: 202505
  30. BISOPROLOL FUMARATE [Concomitant]
     Active Substance: BISOPROLOL FUMARATE
     Dosage: 1.25 MILLIGRAM, QD (DAILY)
     Route: 065
     Dates: start: 202505
  31. BISOPROLOL FUMARATE [Concomitant]
     Active Substance: BISOPROLOL FUMARATE
     Dosage: 1.25 MILLIGRAM, QD (DAILY)
     Route: 065
     Dates: start: 202505
  32. BISOPROLOL FUMARATE [Concomitant]
     Active Substance: BISOPROLOL FUMARATE
     Dosage: 1.25 MILLIGRAM, QD (DAILY)
     Dates: start: 202505
  33. ACETAMINOPHEN [Concomitant]
     Active Substance: ACETAMINOPHEN
     Dosage: 1 GRAM, PRN (UP TO FOUR TIMES DAILY WHEN REQUIRED)
  34. ACETAMINOPHEN [Concomitant]
     Active Substance: ACETAMINOPHEN
     Dosage: 1 GRAM, PRN (UP TO FOUR TIMES DAILY WHEN REQUIRED)
     Route: 065
  35. ACETAMINOPHEN [Concomitant]
     Active Substance: ACETAMINOPHEN
     Dosage: 1 GRAM, PRN (UP TO FOUR TIMES DAILY WHEN REQUIRED)
     Route: 065
  36. ACETAMINOPHEN [Concomitant]
     Active Substance: ACETAMINOPHEN
     Dosage: 1 GRAM, PRN (UP TO FOUR TIMES DAILY WHEN REQUIRED)
  37. IBUPROFEN [Concomitant]
     Active Substance: IBUPROFEN
     Dosage: 400 MILLIGRAM, PRN (UP TO THREE TIMES DAILY WHEN REQUIRED)
  38. IBUPROFEN [Concomitant]
     Active Substance: IBUPROFEN
     Dosage: 400 MILLIGRAM, PRN (UP TO THREE TIMES DAILY WHEN REQUIRED)
     Route: 065
  39. IBUPROFEN [Concomitant]
     Active Substance: IBUPROFEN
     Dosage: 400 MILLIGRAM, PRN (UP TO THREE TIMES DAILY WHEN REQUIRED)
     Route: 065
  40. IBUPROFEN [Concomitant]
     Active Substance: IBUPROFEN
     Dosage: 400 MILLIGRAM, PRN (UP TO THREE TIMES DAILY WHEN REQUIRED)
  41. CODEINE PHOSPHATE [Concomitant]
     Active Substance: CODEINE PHOSPHATE
     Dosage: 30 MILLIGRAM, PRN (UP TO FOUR TIMES DAILY WHEN REQUIRED)
  42. CODEINE PHOSPHATE [Concomitant]
     Active Substance: CODEINE PHOSPHATE
     Dosage: 30 MILLIGRAM, PRN (UP TO FOUR TIMES DAILY WHEN REQUIRED)
     Route: 065
  43. CODEINE PHOSPHATE [Concomitant]
     Active Substance: CODEINE PHOSPHATE
     Dosage: 30 MILLIGRAM, PRN (UP TO FOUR TIMES DAILY WHEN REQUIRED)
     Route: 065
  44. CODEINE PHOSPHATE [Concomitant]
     Active Substance: CODEINE PHOSPHATE
     Dosage: 30 MILLIGRAM, PRN (UP TO FOUR TIMES DAILY WHEN REQUIRED)
  45. NICOTINE [Concomitant]
     Active Substance: NICOTINE
     Dosage: UNK
  46. NICOTINE [Concomitant]
     Active Substance: NICOTINE
     Dosage: UNK
     Route: 065
  47. NICOTINE [Concomitant]
     Active Substance: NICOTINE
     Dosage: UNK
     Route: 065
  48. NICOTINE [Concomitant]
     Active Substance: NICOTINE
     Dosage: UNK
  49. LORAZEPAM [Concomitant]
     Active Substance: LORAZEPAM
     Dosage: 1 MILLIGRAM, PRN (FOR RAPID TRANQUILISATION WHEN REQUIRED MAXIMUM 2 MG/24 HOURS)
  50. LORAZEPAM [Concomitant]
     Active Substance: LORAZEPAM
     Dosage: 1 MILLIGRAM, PRN (FOR RAPID TRANQUILISATION WHEN REQUIRED MAXIMUM 2 MG/24 HOURS)
     Route: 065
  51. LORAZEPAM [Concomitant]
     Active Substance: LORAZEPAM
     Dosage: 1 MILLIGRAM, PRN (FOR RAPID TRANQUILISATION WHEN REQUIRED MAXIMUM 2 MG/24 HOURS)
     Route: 065
  52. LORAZEPAM [Concomitant]
     Active Substance: LORAZEPAM
     Dosage: 1 MILLIGRAM, PRN (FOR RAPID TRANQUILISATION WHEN REQUIRED MAXIMUM 2 MG/24 HOURS)
  53. LORATADINE [Concomitant]
     Active Substance: LORATADINE
     Dosage: 10 MILLIGRAM, QD
     Dates: start: 202505
  54. LORATADINE [Concomitant]
     Active Substance: LORATADINE
     Dosage: 10 MILLIGRAM, QD
     Route: 065
     Dates: start: 202505
  55. LORATADINE [Concomitant]
     Active Substance: LORATADINE
     Dosage: 10 MILLIGRAM, QD
     Route: 065
     Dates: start: 202505
  56. LORATADINE [Concomitant]
     Active Substance: LORATADINE
     Dosage: 10 MILLIGRAM, QD
     Dates: start: 202505
  57. NICOTINE [Concomitant]
     Active Substance: NICOTINE
     Dosage: UNK
  58. NICOTINE [Concomitant]
     Active Substance: NICOTINE
     Dosage: UNK
     Route: 065
  59. NICOTINE [Concomitant]
     Active Substance: NICOTINE
     Dosage: UNK
     Route: 065
  60. NICOTINE [Concomitant]
     Active Substance: NICOTINE
     Dosage: UNK

REACTIONS (4)
  - Priapism [Recovered/Resolved]
  - Drug abuse [Unknown]
  - Overdose [Unknown]
  - Intentional product misuse [Unknown]

NARRATIVE: CASE EVENT DATE: 20250601
